FAERS Safety Report 10775474 (Version 3)
Quarter: 2015Q1

REPORT INFORMATION
  Report Type: Spontaneous
  Country: DE (occurrence: None)
  Receive Date: 20150205
  Receipt Date: 20150323
  Transmission Date: 20150721
  Serious: Yes (Other)
  Sender: FDA-Public Use
  Company Number: 2015-10441

PATIENT
  Age: 72 Year
  Sex: Male

DRUGS (2)
  1. EYLEA [Suspect]
     Active Substance: AFLIBERCEPT
     Indication: CHOROIDAL NEOVASCULARISATION
     Route: 031
     Dates: start: 201305, end: 201305
  2. EYLEA [Suspect]
     Active Substance: AFLIBERCEPT
     Indication: AGE-RELATED MACULAR DEGENERATION
     Route: 031
     Dates: start: 201305, end: 201305

REACTIONS (3)
  - Iridocyclitis [None]
  - Vitreous opacities [None]
  - Iritis [None]

NARRATIVE: CASE EVENT DATE: 20150113
